FAERS Safety Report 15017145 (Version 1)
Quarter: 2018Q2

REPORT INFORMATION
  Report Type: Spontaneous
  Country: US (occurrence: US)
  Receive Date: 20180523
  Receipt Date: 20180523
  Transmission Date: 20180711
  Serious: No
  Sender: FDA-Public Use
  Company Number: None

PATIENT
  Age: 60 Year
  Sex: Female

DRUGS (1)
  1. STIVARGA [Suspect]
     Active Substance: REGORAFENIB
     Indication: HEPATIC NEOPLASM
     Route: 048
     Dates: start: 20180111

REACTIONS (3)
  - Blister [None]
  - Pain in extremity [None]
  - Dysuria [None]

NARRATIVE: CASE EVENT DATE: 20180501
